FAERS Safety Report 16225199 (Version 1)
Quarter: 2019Q2

REPORT INFORMATION
  Report Type: Spontaneous
  Country: US (occurrence: US)
  Receive Date: 20190422
  Receipt Date: 20190422
  Transmission Date: 20190711
  Serious: Yes (Hospitalization, Other)
  Sender: FDA-Public Use
  Company Number: US-MYLANLABS-2019M1037494

PATIENT
  Age: 55 Year
  Sex: Male

DRUGS (2)
  1. FLUPENTHIXOL                       /00109701/ [Interacting]
     Active Substance: FLUPENTIXOL
     Indication: SCHIZOPHRENIA
     Route: 030
  2. PALIPERIDONE. [Suspect]
     Active Substance: PALIPERIDONE
     Indication: SCHIZOPHRENIA
     Dosage: 50 MG EQUIVALENT IN THE GLUTEAL MUSCLE ON DAY 1 AND 8 OF THE DOUBLE BLIND PERIOD
     Route: 030

REACTIONS (2)
  - Drug interaction [Recovered/Resolved]
  - Neuroleptic malignant syndrome [Recovered/Resolved]
